FAERS Safety Report 11088455 (Version 5)
Quarter: 2016Q1

REPORT INFORMATION
  Report Type: Spontaneous
  Country: JP (occurrence: JP)
  Receive Date: 20150504
  Receipt Date: 20160203
  Transmission Date: 20160525
  Serious: Yes (Hospitalization)
  Sender: FDA-Public Use
  Company Number: JP-TEVA-559973USA

PATIENT
  Age: 74 Year
  Sex: Female

DRUGS (22)
  1. BENDAMUSTINE HYDROCHLORIDE [Suspect]
     Active Substance: BENDAMUSTINE HYDROCHLORIDE
     Indication: MANTLE CELL LYMPHOMA
     Dosage: (1ST CYCLE)
     Route: 042
     Dates: start: 20150317, end: 20150318
  2. BENDAMUSTINE HYDROCHLORIDE [Suspect]
     Active Substance: BENDAMUSTINE HYDROCHLORIDE
     Dosage: (2ND CYCLE)
     Route: 042
     Dates: start: 20150427, end: 20150427
  3. RITUXIMAB [Concomitant]
     Active Substance: RITUXIMAB
     Indication: MANTLE CELL LYMPHOMA
     Route: 042
     Dates: start: 20150316
  4. MAGNESIUM OXIDE. [Concomitant]
     Active Substance: MAGNESIUM OXIDE
     Indication: CONSTIPATION
     Route: 048
     Dates: start: 20150319, end: 20150325
  5. RITUXIMAB [Concomitant]
     Active Substance: RITUXIMAB
     Route: 042
     Dates: start: 20150501
  6. ERYTHROMYCIN ETHYLSUCCINATE. [Concomitant]
     Active Substance: ERYTHROMYCIN ETHYLSUCCINATE
     Indication: DIFFUSE PANBRONCHIOLITIS
     Route: 048
  7. AZELNIDIPINE [Concomitant]
     Active Substance: AZELNIDIPINE
     Indication: HYPERTENSION
     Route: 048
     Dates: end: 20150429
  8. TRICHLORMETHIAZIDE [Concomitant]
     Active Substance: TRICHLORMETHIAZIDE
     Indication: HYPERTENSION
     Route: 048
     Dates: end: 20150630
  9. ZOLPIDEM TARTRATE. [Concomitant]
     Active Substance: ZOLPIDEM TARTRATE
     Indication: INSOMNIA
     Route: 048
     Dates: start: 20150426, end: 20150928
  10. BENDAMUSTINE HYDROCHLORIDE [Suspect]
     Active Substance: BENDAMUSTINE HYDROCHLORIDE
     Route: 042
     Dates: start: 20150819
  11. BENDAMUSTINE HYDROCHLORIDE [Suspect]
     Active Substance: BENDAMUSTINE HYDROCHLORIDE
     Route: 042
     Dates: start: 20150925, end: 20150926
  12. ACICLOVIR [Concomitant]
     Active Substance: ACYCLOVIR
     Indication: ANTIVIRAL PROPHYLAXIS
     Route: 048
     Dates: start: 20150325, end: 20151209
  13. BENDAMUSTINE HYDROCHLORIDE [Suspect]
     Active Substance: BENDAMUSTINE HYDROCHLORIDE
     Dosage: (3RD CYCLE)
     Route: 042
     Dates: start: 20150527, end: 20150527
  14. BENDAMUSTINE HYDROCHLORIDE [Suspect]
     Active Substance: BENDAMUSTINE HYDROCHLORIDE
     Dosage: (4TH CYCLE)
     Route: 042
     Dates: start: 20150625, end: 20150625
  15. RITUXIMAB [Concomitant]
     Active Substance: RITUXIMAB
     Route: 042
     Dates: start: 20150819
  16. RITUXIMAB [Concomitant]
     Active Substance: RITUXIMAB
     Dosage: 375 MG/M2, UNK
     Route: 042
     Dates: start: 20150924
  17. ROSUVASTATIN CALCIUM. [Concomitant]
     Active Substance: ROSUVASTATIN CALCIUM
     Indication: DYSLIPIDAEMIA
     Route: 048
     Dates: end: 20150810
  18. LANSOPRAZOLE. [Concomitant]
     Active Substance: LANSOPRAZOLE
     Indication: GASTRITIS
     Route: 048
  19. RITUXIMAB [Concomitant]
     Active Substance: RITUXIMAB
     Route: 042
     Dates: start: 20150623
  20. OLMESARTAN MEDOXOMIL. [Concomitant]
     Active Substance: OLMESARTAN MEDOXOMIL
     Indication: HYPERTENSION
     Route: 048
  21. BENDAMUSTINE HYDROCHLORIDE [Suspect]
     Active Substance: BENDAMUSTINE HYDROCHLORIDE
     Route: 042
     Dates: start: 20150825
  22. RITUXIMAB [Concomitant]
     Active Substance: RITUXIMAB
     Route: 042
     Dates: start: 20150526

REACTIONS (3)
  - Nausea [Recovered/Resolved]
  - Neutrophil count decreased [Unknown]
  - Immune thrombocytopenic purpura [Recovered/Resolved]

NARRATIVE: CASE EVENT DATE: 20150411
